FAERS Safety Report 7159409-8 (Version None)
Quarter: 2010Q4

REPORT INFORMATION
  Report Type: 
  Country: None (occurrence: None)
  Receive Date: 20101214
  Receipt Date: 20100831
  Transmission Date: 20110411
  Serious: Yes (Other)
  Sender: FDA-Public Use
  Company Number: US-ASTRAZENECA-2010SE40980

PATIENT
  Sex: Female

DRUGS (5)
  1. CRESTOR [Suspect]
     Route: 048
  2. LIPITOR [Suspect]
     Route: 048
  3. SIMVASTATIN [Suspect]
     Route: 065
  4. VYTORIN [Suspect]
     Route: 065
  5. ZOCOR [Suspect]
     Route: 065

REACTIONS (3)
  - HEPATIC ENZYME INCREASED [None]
  - MUSCLE SPASMS [None]
  - MYALGIA [None]
